FAERS Safety Report 10009061 (Version 2)
Quarter: 2014Q1

REPORT INFORMATION
  Report Type: Spontaneous
  Country: US (occurrence: US)
  Receive Date: 20140313
  Receipt Date: 20140313
  Transmission Date: 20141002
  Serious: Yes (Hospitalization)
  Sender: FDA-Public Use
  Company Number: US-GILEAD-2013-0070944

PATIENT
  Age: 62 Year
  Sex: Female
  Weight: 140.59 kg

DRUGS (12)
  1. LETAIRIS [Suspect]
     Indication: PULMONARY ARTERIAL HYPERTENSION
     Dosage: 5 MG, QD
     Dates: start: 20130128, end: 20130308
  2. LETAIRIS [Suspect]
     Indication: PULMONARY ARTERIAL HYPERTENSION
  3. ALBUTEROL                          /00139501/ [Concomitant]
  4. FERROUS SULFATE [Concomitant]
  5. KCL [Concomitant]
  6. LASIX                              /00032601/ [Concomitant]
  7. LIPITOR [Concomitant]
  8. DIOVAN HCT [Concomitant]
  9. DEPALCOLE ER [Concomitant]
     Dosage: UNK
     Dates: start: 20080804
  10. NORVASC [Concomitant]
     Dosage: UNK
     Dates: start: 20080804
  11. TOPAMAX [Concomitant]
  12. NIACIN [Concomitant]

REACTIONS (5)
  - Anaemia [Unknown]
  - Oedema peripheral [Recovering/Resolving]
  - Lethargy [Recovered/Resolved]
  - Pyrexia [Recovered/Resolved]
  - Swelling [Recovered/Resolved]
